FAERS Safety Report 6168500-4 (Version None)
Quarter: 2009Q2

REPORT INFORMATION
  Report Type: 
  Country: None (occurrence: None)
  Receive Date: 20090427
  Receipt Date: 20090417
  Transmission Date: 20091009
  Serious: Yes (Death)
  Sender: FDA-Public Use
  Company Number: A0780396A

PATIENT
  Age: 42 Year
  Sex: Female

DRUGS (9)
  1. AVANDIA [Suspect]
     Indication: DIABETES MELLITUS
     Dosage: 4MG PER DAY
     Route: 048
     Dates: start: 20040828, end: 20070101
  2. METFORMIN HCL [Concomitant]
  3. GLYBURIDE [Concomitant]
  4. PREDNISONE [Concomitant]
  5. TRAZODONE [Concomitant]
  6. CYMBALTA [Concomitant]
  7. PRILOSEC [Concomitant]
  8. FERROUS SULFATE TAB [Concomitant]
  9. XANAX [Concomitant]

REACTIONS (1)
  - MYOCARDIAL INFARCTION [None]
